FAERS Safety Report 5631765-9 (Version None)
Quarter: 2008Q1

REPORT INFORMATION
  Report Type: 
  Country: None (occurrence: None)
  Receive Date: 20080219
  Receipt Date: 20080219
  Transmission Date: 20080703
  Serious: Yes (Other)
  Sender: FDA-Public Use
  Company Number: None

PATIENT
  Age: 50 Year
  Sex: Male
  Weight: 88.905 kg

DRUGS (13)
  1. MIDAZOLAM HCL [Suspect]
     Indication: ECHOCARDIOGRAM
     Dosage: 3MG IN 1 MG INCREMENT FROM 0900-0905 IV
     Route: 042
     Dates: start: 20080211
  2. MIDAZOLAM HCL [Suspect]
     Indication: SEDATION
     Dosage: 3MG IN 1 MG INCREMENT FROM 0900-0905 IV
     Route: 042
     Dates: start: 20080211
  3. MEPERIDONE [Suspect]
     Indication: SEDATION
     Dosage: 25MG X1 AT 0900 IV
     Route: 042
     Dates: start: 20080211
  4. HEPARIN [Suspect]
     Indication: CATHETERISATION CARDIAC
     Dosage: 1500 UNITS X1 IV
     Route: 042
     Dates: start: 20080211
  5. AMLODIPINE [Concomitant]
  6. M.V.I. [Concomitant]
  7. ASPIRIN [Concomitant]
  8. VERSED [Concomitant]
  9. DEMEROL [Concomitant]
  10. VISCOUS LIDO [Concomitant]
  11. HURRICAINE SPRAY [Concomitant]
  12. OMNIPAQUE 300 [Concomitant]
  13. . [Concomitant]

REACTIONS (5)
  - BLOOD PRESSURE DIASTOLIC DECREASED [None]
  - CARDIAC FAILURE ACUTE [None]
  - HEART RATE DECREASED [None]
  - HYPOTENSION [None]
  - MITRAL VALVE INCOMPETENCE [None]
